FAERS Safety Report 6109737-X (Version None)
Quarter: 2009Q1

REPORT INFORMATION
  Report Type: 
  Country: None (occurrence: None)
  Receive Date: 20090310
  Receipt Date: 20080328
  Transmission Date: 20090719
  Serious: No
  Sender: FDA-Public Use
  Company Number: A0718032A

PATIENT
  Age: 30 Year
  Sex: Male

DRUGS (2)
  1. NICORETTE (MINT) [Suspect]
     Dates: start: 20080325, end: 20080326
  2. NICORETTE [Suspect]
     Dates: start: 20080325, end: 20080326

REACTIONS (3)
  - DYSURIA [None]
  - FEELING HOT [None]
  - PYREXIA [None]
